FAERS Safety Report 8296411-7 (Version None)
Quarter: 2012Q2

REPORT INFORMATION
  Report Type: 
  Country: None (occurrence: None)
  Receive Date: 20120418
  Receipt Date: 20120406
  Transmission Date: 20120825
  Serious: Yes (Hospitalization)
  Sender: FDA-Public Use
  Company Number: US-ROCHE-1058106

PATIENT
  Sex: Female
  Weight: 97.156 kg

DRUGS (9)
  1. PULMICORT [Concomitant]
     Route: 065
  2. FLONASE [Concomitant]
     Route: 065
  3. SINGULAIR [Concomitant]
     Route: 065
  4. ZYFLO [Concomitant]
     Route: 065
  5. ADVAIR DISKUS 100/50 [Concomitant]
     Route: 065
  6. VENTOLIN [Concomitant]
     Route: 065
  7. ZYRTEC [Concomitant]
     Route: 065
  8. OMALIZUMAB [Suspect]
     Indication: ASTHMA
     Route: 058
     Dates: start: 20100521
  9. ALBUTEROL [Concomitant]
     Route: 065

REACTIONS (3)
  - INFLUENZA [None]
  - PNEUMONIA [None]
  - GASTROINTESTINAL DISORDER [None]
